FAERS Safety Report 7000966-X (Version None)
Quarter: 2010Q3

REPORT INFORMATION
  Report Type: 
  Country: None (occurrence: None)
  Receive Date: 20100920
  Receipt Date: 20080402
  Transmission Date: 20110219
  Serious: Yes (Hospitalization, Other)
  Sender: FDA-Public Use
  Company Number: US-ASTRAZENECA-2007UW10973

PATIENT
  Age: 18248 Day
  Sex: Female

DRUGS (19)
  1. SEROQUEL [Suspect]
     Indication: DEPRESSION
     Route: 048
     Dates: start: 20000101, end: 20050601
  2. SEROQUEL [Suspect]
     Indication: ANXIETY
     Route: 048
     Dates: start: 20000101, end: 20050601
  3. SEROQUEL [Suspect]
     Route: 048
     Dates: start: 20041111
  4. SEROQUEL [Suspect]
     Route: 048
     Dates: start: 20041111
  5. SINEQUAN [Concomitant]
     Indication: SLEEP DISORDER
     Dosage: 25 MG - 100 MG
     Route: 048
     Dates: start: 20060101
  6. CELEXA [Concomitant]
     Dosage: 40 MG ONE AND HALF EVERY DAY
     Route: 048
     Dates: start: 20041111
  7. XANAX [Concomitant]
     Dosage: 0.25 MG - 2 MG
     Route: 048
     Dates: start: 20040110
  8. AMBIEN [Concomitant]
     Dosage: 5 MG - 12.5 MG
     Route: 048
     Dates: start: 20040109
  9. HYDROXYZINE [Concomitant]
     Route: 048
     Dates: start: 20041111
  10. NITROGLYCERIN [Concomitant]
     Dosage: 0.2 MG - 0.4 MG
     Dates: start: 20040108
  11. INSULIN [Concomitant]
     Dosage: 100 UNITS 10 ML
     Dates: start: 20040108
  12. ASPIRIN [Concomitant]
     Dosage: 81 MG
     Dates: start: 20060817
  13. PREDNISONE [Concomitant]
     Dosage: 20 MG
     Dates: start: 20060814
  14. NIFEDIPINE [Concomitant]
     Dosage: 10 MG
     Dates: start: 19960409
  15. LISINOPRIL [Concomitant]
     Dosage: 10 MG - 20 MG
     Dates: start: 20040108
  16. METOPROLOL [Concomitant]
     Dosage: 12.5 MG
     Dates: start: 20071014
  17. METHYLPREDNISOLONE [Concomitant]
     Dosage: 4 MG
     Dates: start: 20040108
  18. PANTOPRAZOLE [Concomitant]
     Dosage: 40 MG
     Dates: start: 20040108
  19. ESCITALOPRAM OXALATE [Concomitant]
     Dosage: 10 MG
     Dates: start: 20060818

REACTIONS (3)
  - DIABETES MELLITUS [None]
  - DIABETES MELLITUS INADEQUATE CONTROL [None]
  - DIABETIC KETOACIDOSIS [None]
